FAERS Safety Report 19938884 (Version 2)
Quarter: 2022Q3

REPORT INFORMATION
  Report Type: Spontaneous
  Country: JP (occurrence: JP)
  Receive Date: 20211011
  Receipt Date: 20220714
  Transmission Date: 20221026
  Serious: Yes (Other)
  Sender: FDA-Public Use
  Company Number: JP-GLAXOSMITHKLINE-JP2021JPN199976

PATIENT

DRUGS (3)
  1. FLUTICASONE PROPIONATE [Suspect]
     Active Substance: FLUTICASONE PROPIONATE
     Indication: Asthma
     Dosage: UNK
     Route: 055
     Dates: start: 2021
  2. FLUTICASONE PROPIONATE\FORMOTEROL FUMARATE [Concomitant]
     Active Substance: FLUTICASONE PROPIONATE\FORMOTEROL FUMARATE
     Indication: Asthma
     Dosage: UNK, BID, 2 INHALATIONS/DOSE
     Route: 055
     Dates: start: 202102, end: 202104
  3. PROCATEROL HYDROCHLORIDE [Concomitant]
     Active Substance: PROCATEROL HYDROCHLORIDE
     Indication: Asthma
     Dosage: UNK, 2 INHALATIONS/DOSE, AT AN ATTACK
     Route: 055

REACTIONS (3)
  - Oesophageal candidiasis [Not Recovered/Not Resolved]
  - Duodenal ulcer [Recovered/Resolved]
  - Abdominal discomfort [Unknown]

NARRATIVE: CASE EVENT DATE: 20210701
